FAERS Safety Report 5313749-3 (Version None)
Quarter: 2007Q2

REPORT INFORMATION
  Report Type: 
  Country: None (occurrence: None)
  Receive Date: 20070501
  Receipt Date: 20070420
  Transmission Date: 20071010
  Serious: Yes (Other)
  Sender: FDA-Public Use
  Company Number: DE-JNJFOC-20070402435

PATIENT
  Age: 43 Year
  Sex: Female

DRUGS (1)
  1. REMICADE [Suspect]
     Indication: PSORIASIS
     Route: 042

REACTIONS (4)
  - CIRCULATORY COLLAPSE [None]
  - HYPERTENSION [None]
  - TACHYCARDIA [None]
  - VERTIGO [None]
